FAERS Safety Report 7151435-8 (Version None)
Quarter: 2010Q4

REPORT INFORMATION
  Report Type: 
  Country: None (occurrence: None)
  Receive Date: 20101210
  Receipt Date: 20101202
  Transmission Date: 20110411
  Serious: Yes (Hospitalization, Other)
  Sender: FDA-Public Use
  Company Number: US-ABBOTT-10P-163-0689452-00

PATIENT
  Sex: Female
  Weight: 63.106 kg

DRUGS (10)
  1. HUMIRA [Suspect]
     Indication: PSORIATIC ARTHROPATHY
     Dates: start: 20080901, end: 20081201
  2. HUMIRA [Suspect]
     Dates: start: 20090301, end: 20100401
  3. HUMIRA [Suspect]
     Dates: start: 20100801
  4. MOBIC [Suspect]
     Indication: PAIN
     Dates: start: 20081201, end: 20090201
  5. LABETALOL HCL [Concomitant]
     Indication: PRODUCT USED FOR UNKNOWN INDICATION
  6. PLAVIX [Concomitant]
     Indication: PRODUCT USED FOR UNKNOWN INDICATION
  7. SIMVASTATIN [Concomitant]
     Indication: PRODUCT USED FOR UNKNOWN INDICATION
  8. ASPIRIN [Concomitant]
     Indication: PRODUCT USED FOR UNKNOWN INDICATION
     Dosage: TAKES ON MONDAY AND THURSDAY ONLY.
  9. CALCIUM [Concomitant]
     Indication: PRODUCT USED FOR UNKNOWN INDICATION
  10. MULTI-VITAMIN [Concomitant]
     Indication: PRODUCT USED FOR UNKNOWN INDICATION

REACTIONS (4)
  - CEREBROVASCULAR ACCIDENT [None]
  - OSTEOARTHRITIS [None]
  - PAIN [None]
  - VISUAL IMPAIRMENT [None]
